FAERS Safety Report 12066994 (Version 1)
Quarter: 2016Q1

REPORT INFORMATION
  Report Type: Spontaneous
  Country: CA (occurrence: CA)
  Receive Date: 20160211
  Receipt Date: 20160211
  Transmission Date: 20160526
  Serious: Yes (Life-Threatening)
  Sender: FDA-Public Use
  Company Number: CA-TEVA-633463ACC

PATIENT
  Age: 86 Year
  Sex: Female
  Weight: 67 kg

DRUGS (7)
  1. SYNTHROID [Concomitant]
     Active Substance: LEVOTHYROXINE SODIUM
  2. ADVAIR HFA [Concomitant]
     Active Substance: FLUTICASONE PROPIONATE\SALMETEROL XINAFOATE
  3. NADOLOL. [Concomitant]
     Active Substance: NADOLOL
  4. PRAVACHOL [Concomitant]
     Active Substance: PRAVASTATIN SODIUM
  5. RATIO-NYSTATIN [Suspect]
     Active Substance: NYSTATIN
     Indication: CANDIDA INFECTION
     Dosage: 20 ML DAILY;
     Route: 065
  6. PANTOLOC [Concomitant]
     Active Substance: PANTOPRAZOLE SODIUM
  7. LOZIDE [Concomitant]
     Active Substance: INDAPAMIDE

REACTIONS (4)
  - Skin exfoliation [Not Recovered/Not Resolved]
  - Stevens-Johnson syndrome [Not Recovered/Not Resolved]
  - Blister [Not Recovered/Not Resolved]
  - Dysphagia [Not Recovered/Not Resolved]
